FAERS Safety Report 9654193 (Version 2)
Quarter: 2013Q4

REPORT INFORMATION
  Report Type: Spontaneous
  Country: JP (occurrence: JP)
  Receive Date: 20131029
  Receipt Date: 20131029
  Transmission Date: 20140711
  Serious: Yes (Hospitalization)
  Sender: FDA-Public Use
  Company Number: JP-CUBIST PHARMACEUTICALS, INC.-2013CBST000931

PATIENT
  Sex: 0

DRUGS (9)
  1. CUBICIN [Suspect]
     Indication: STAPHYLOCOCCAL ABSCESS
     Dosage: 350 MG, ONCE DAILY
     Route: 041
     Dates: start: 20130816, end: 20130912
  2. CUBICIN [Suspect]
     Dosage: 7 MG/KG, ONCE DAILY
     Route: 041
     Dates: start: 20130816, end: 20130912
  3. CEFTAZIDIME [Suspect]
     Indication: PNEUMONIA
     Dosage: UNK UNK, UNK
     Route: 042
     Dates: start: 20130821, end: 20130911
  4. VANCOMYCIN [Concomitant]
     Indication: PRODUCT USED FOR UNKNOWN INDICATION
     Dosage: UNK, UNK, UNK
     Route: 065
  5. DIOVAN [Concomitant]
     Indication: HYPERTENSION
     Dosage: 80 MG, ONCE DAILY
     Route: 048
     Dates: start: 20130724, end: 20130911
  6. VASOLAN                            /00014302/ [Concomitant]
     Indication: ATRIAL FIBRILLATION
     Dosage: 40 MG, TID
     Route: 048
     Dates: start: 20130724
  7. CALONAL [Concomitant]
     Indication: OSTEOMYELITIS
     Dosage: 500 MG, QID
     Route: 048
     Dates: start: 20130829
  8. GRAMALIL [Concomitant]
     Indication: DELIRIUM
     Dosage: 25 MG, ONCE DAILY
     Route: 048
     Dates: start: 20130908, end: 20130911
  9. DESYREL [Concomitant]
     Indication: DELIRIUM
     Dosage: 25 MG, ONCE DAILY
     Route: 048
     Dates: start: 20130908, end: 20130912

REACTIONS (1)
  - Renal disorder [Recovered/Resolved]
